FAERS Safety Report 7609027-X (Version None)
Quarter: 2011Q3

REPORT INFORMATION
  Report Type: 
  Country: None (occurrence: None)
  Receive Date: 20110713
  Receipt Date: 20110713
  Transmission Date: 20111222
  Serious: Yes (Other)
  Sender: FDA-Public Use
  Company Number: None

PATIENT
  Age: 44 Year
  Sex: Male
  Weight: 79.3795 kg

DRUGS (2)
  1. FINASTERIDE [Suspect]
     Indication: ALOPECIA
     Dosage: 1.5MG EVERY DAY
     Dates: start: 20050405, end: 20110608
  2. FINASTERIDE [Suspect]

REACTIONS (8)
  - ERECTILE DYSFUNCTION [None]
  - FEAR [None]
  - DISTURBANCE IN SEXUAL AROUSAL [None]
  - ANXIETY [None]
  - LETHARGY [None]
  - ARTHRALGIA [None]
  - ASTHENIA [None]
  - MEMORY IMPAIRMENT [None]
